FAERS Safety Report 6635372-0 (Version None)
Quarter: 2010Q1

REPORT INFORMATION
  Report Type: 
  Country: None (occurrence: None)
  Receive Date: 20100312
  Receipt Date: 20100312
  Transmission Date: 20100710
  Serious: Yes (Other)
  Sender: FDA-Public Use
  Company Number: None

PATIENT
  Sex: Female
  Weight: 44.4525 kg

DRUGS (2)
  1. FOSAMAX [Suspect]
  2. FORTICAL [Concomitant]

REACTIONS (6)
  - EXOSTOSIS [None]
  - GASTRIC ULCER [None]
  - HIP FRACTURE [None]
  - OSTEOMYELITIS [None]
  - OSTEONECROSIS [None]
  - WRIST FRACTURE [None]
